FAERS Safety Report 6087845-X (Version None)
Quarter: 2009Q1

REPORT INFORMATION
  Report Type: 
  Country: None (occurrence: None)
  Receive Date: 20090219
  Receipt Date: 20090219
  Transmission Date: 20090719
  Serious: Yes (Disabling)
  Sender: FDA-Public Use
  Company Number: None

PATIENT
  Sex: Female

DRUGS (1)
  1. TERBINAFINE HCL [Suspect]
     Dosage: 250 MG. 1X DAILY ORAL
     Route: 048

REACTIONS (1)
  - DYSGEUSIA [None]
